FAERS Safety Report 15324280 (Version 2)
Quarter: 2018Q3

REPORT INFORMATION
  Report Type: Spontaneous
  Country: US (occurrence: US)
  Receive Date: 20180828
  Receipt Date: 20180911
  Transmission Date: 20181010
  Serious: No
  Sender: FDA-Public Use
  Company Number: US-009507513-1808USA001287

PATIENT
  Sex: Female

DRUGS (3)
  1. GANIRELIX ACETATE INJECTION [Suspect]
     Active Substance: GANIRELIX ACETATE
  2. FOLLISTIM [Suspect]
     Active Substance: FOLLITROPIN
     Dosage: STRENGTH: 900 U
  3. FOLLISTIM [Suspect]
     Active Substance: FOLLITROPIN
     Dosage: STRENGTH: 900 U

REACTIONS (4)
  - Product quality issue [Unknown]
  - No adverse event [Unknown]
  - Circumstance or information capable of leading to medication error [Unknown]
  - Drug administration error [Unknown]
